FAERS Safety Report 4680152-9 (Version None)
Quarter: 2005Q2

REPORT INFORMATION
  Report Type: 
  Country: None (occurrence: None)
  Receive Date: 20050602
  Receipt Date: 20040614
  Transmission Date: 20051028
  Serious: Yes (Death, Other)
  Sender: FDA-Public Use
  Company Number: PHBS2004BE07989

PATIENT
  Age: 76 Year

DRUGS (5)
  1. AREDIA [Suspect]
     Indication: MULTIPLE MYELOMA
     Dosage: UNK, UNK
     Route: 042
     Dates: start: 20040401
  2. ZOMETA [Suspect]
     Indication: MULTIPLE MYELOMA
     Dosage: 4 MG, QMO
     Route: 042
     Dates: start: 20021002, end: 20040316
  3. THALIDOMIDE [Concomitant]
     Dosage: UNK, UNK
     Route: 048
     Dates: start: 20011026, end: 20030129
  4. DEXAMETHASONE [Concomitant]
     Dates: start: 20040107, end: 20040316
  5. VINCRISTINE + ADRIAMYCIN + DEXAMETHASONE [Concomitant]

REACTIONS (4)
  - ASEPTIC NECROSIS BONE [None]
  - EXCESSIVE GRANULATION TISSUE [None]
  - MALIGNANT NEOPLASM PROGRESSION [None]
  - OSTEONECROSIS [None]
